FAERS Safety Report 8604438-8 (Version None)
Quarter: 2012Q3

REPORT INFORMATION
  Report Type: 
  Country: None (occurrence: None)
  Receive Date: 20120820
  Receipt Date: 20120807
  Transmission Date: 20120928
  Serious: Yes (Hospitalization, Other)
  Sender: FDA-Public Use
  Company Number: BR-JNJFOC-20120805428

PATIENT
  Sex: Male
  Weight: 80 kg

DRUGS (2)
  1. INVEGA SUSTENNA [Suspect]
     Route: 030
  2. INVEGA SUSTENNA [Suspect]
     Indication: SCHIZOPHRENIA
     Route: 030
     Dates: start: 20120705

REACTIONS (1)
  - CATATONIA [None]
